FAERS Safety Report 21369788 (Version 2)
Quarter: 2022Q4

REPORT INFORMATION
  Report Type: Spontaneous
  Country: US (occurrence: US)
  Receive Date: 20220923
  Receipt Date: 20221114
  Transmission Date: 20230113
  Serious: No
  Sender: FDA-Public Use
  Company Number: US-BRISTOL-MYERS SQUIBB COMPANY-2022-110902

PATIENT
  Age: 73 Year
  Sex: Female
  Weight: 55.34 kg

DRUGS (2)
  1. POMALYST [Suspect]
     Active Substance: POMALIDOMIDE
     Indication: Plasma cell myeloma
     Dosage: DAILY FOR 21DAYS
     Route: 048
  2. POMALYST [Suspect]
     Active Substance: POMALIDOMIDE
     Dosage: FREQ : 21D ON 7D OFF
     Route: 048

REACTIONS (4)
  - Oral discomfort [Unknown]
  - Tongue discomfort [Unknown]
  - Skin disorder [Unknown]
  - Skin discolouration [Unknown]
